FAERS Safety Report 5051195-0 (Version None)
Quarter: 2006Q3

REPORT INFORMATION
  Report Type: 
  Country: None (occurrence: None)
  Receive Date: 20060714
  Receipt Date: 20060614
  Transmission Date: 20061208
  Serious: Yes (Death)
  Sender: FDA-Public Use
  Company Number: PHHO2006JP09828

PATIENT
  Age: 81 Year
  Sex: Male

DRUGS (7)
  1. LOCHOL [Suspect]
     Indication: HYPERCHOLESTEROLAEMIA
     Dosage: 20 MG, QD
     Route: 048
     Dates: start: 20010904, end: 20030701
  2. LOCHOL [Suspect]
     Dosage: 30 MG, QD
     Route: 048
     Dates: start: 20030702, end: 20051104
  3. LANDEL [Suspect]
     Indication: ESSENTIAL HYPERTENSION
     Dosage: 20 MG, QD
     Route: 048
     Dates: start: 19980611
  4. LANDEL [Suspect]
     Dosage: 40 MG, QD
     Route: 048
  5. LANDEL [Suspect]
     Dosage: 20 MG, QD
     Route: 048
     Dates: end: 20051104
  6. BLOPRESS [Concomitant]
     Indication: ESSENTIAL HYPERTENSION
  7. THEOLONG [Concomitant]
     Indication: ASTHMA

REACTIONS (3)
  - ACUTE MYOCARDIAL INFARCTION [None]
  - DYSPNOEA [None]
  - VENTRICULAR FIBRILLATION [None]
